FAERS Safety Report 19090872 (Version 4)
Quarter: 2021Q3

REPORT INFORMATION
  Report Type: Spontaneous
  Country: JP (occurrence: JP)
  Receive Date: 20210405
  Receipt Date: 20210716
  Transmission Date: 20211014
  Serious: Yes (Death, Other)
  Sender: FDA-Public Use
  Company Number: JP-AMGEN-JPNSP2021049131

PATIENT
  Age: 87 Year
  Sex: Female
  Weight: 43 kg

DRUGS (11)
  1. EVENITY [Suspect]
     Active Substance: ROMOSOZUMAB-AQQG
     Indication: OSTEOPOROSIS POSTMENOPAUSAL
  2. MIRABEGRON [Concomitant]
     Active Substance: MIRABEGRON
     Dosage: 50 MILLIGRAM, QD (AFTER BREAKFAST)
  3. SPIRONOLACTONE. [Concomitant]
     Active Substance: SPIRONOLACTONE
     Dosage: 25 MILLIGRAM, QD (AFTER BREAKFAST)
  4. YOKUKANSAN [Concomitant]
     Active Substance: HERBALS
     Dosage: 2.5 GRAM, QD (BEFORE BEDTIME)
  5. RABEPRAZOLE NA [Concomitant]
     Active Substance: RABEPRAZOLE SODIUM
     Dosage: 10 MILLIGRAM, QD (BEFORE BEDTIME)
  6. OLMESARTAN OD [Concomitant]
     Active Substance: OLMESARTAN MEDOXOMIL
     Dosage: 20 MILLIGRAM, QD (BEFORE BEDTIME)
  7. AMINOLEBAN EN [Concomitant]
     Active Substance: UNSPECIFIED INGREDIENT
     Dosage: 50 GRAM, QD (BEFORE BEDTIME)
  8. MAGNESIUM OXIDE. [Concomitant]
     Active Substance: MAGNESIUM OXIDE
     Dosage: 330 MILLIGRAM, BID  (AFTER BREAKFAST AND AFTER DINNER)
     Dates: start: 20191209
  9. EVENITY [Suspect]
     Active Substance: ROMOSOZUMAB-AQQG
     Indication: OSTEOPOROSIS
     Dosage: 210 MILLIGRAM
     Route: 058
     Dates: start: 20190909, end: 20191209
  10. ELDECALCITOL [Concomitant]
     Active Substance: ELDECALCITOL
     Dosage: 0.75 MICROGRAM, QD (AFTER BREAKFAST)
  11. DIPOTASSIUM PHOSPHATE [Concomitant]
     Active Substance: POTASSIUM PHOSPHATE, DIBASIC
     Dosage: 50 GRAM, 3 SPRAY DEVIICES (SPRAY AS PER PHYSICIAN^S INSTRUCTION)

REACTIONS (1)
  - Ruptured cerebral aneurysm [Fatal]

NARRATIVE: CASE EVENT DATE: 20191219
